FAERS Safety Report 8858397 (Version 13)
Quarter: 2013Q3

REPORT INFORMATION
  Report Type: Spontaneous
  Country: US (occurrence: US)
  Receive Date: 20121024
  Receipt Date: 20130924
  Transmission Date: 20140515
  Serious: Yes (Disabling, Other)
  Sender: FDA-Public Use
  Company Number: US-009507513-1210USA010504

PATIENT
  Age: 66 Year
  Sex: Female

DRUGS (10)
  1. VICTRELIS [Suspect]
     Indication: HEPATITIS C
     Dosage: 5.000 MG, QD
     Route: 048
     Dates: start: 20121005, end: 201305
  2. RIBAVIRIN [Suspect]
     Indication: HEPATITIS C
     Dosage: DIVIDED DOSES, QD
     Route: 048
     Dates: start: 20120907
  3. RIBAVIRIN [Suspect]
     Dosage: 1200 MG, QD
  4. RIBAVIRIN [Suspect]
     Dosage: 800 MG, UNK
     Route: 048
     Dates: start: 20120907, end: 20130802
  5. PEGASYS [Suspect]
     Indication: HEPATITIS C
     Dosage: 180 MICROGRAM, QW, FORMULATION: PRE-FILLED PEN
     Route: 058
     Dates: end: 20120907
  6. PEGASYS [Suspect]
     Dosage: 135 MICROGRAM, QW
     Route: 058
     Dates: start: 20121207
  7. PEGASYS [Suspect]
     Dosage: 90 MICROGRAM, QW
     Route: 058
     Dates: end: 20130802
  8. BIOTIN [Concomitant]
     Dosage: 5000 MG, QD
  9. FILGRASTIM [Concomitant]
  10. NEUPOGEN [Concomitant]

REACTIONS (57)
  - Malaise [Unknown]
  - Disturbance in attention [Unknown]
  - Cardiac flutter [Not Recovered/Not Resolved]
  - Anaemia [Unknown]
  - Hepatic mass [Unknown]
  - Feeling abnormal [Unknown]
  - Abasia [Unknown]
  - Lethargy [Unknown]
  - Malaise [Unknown]
  - Visual impairment [Unknown]
  - Mental impairment [Unknown]
  - Leukopenia [Not Recovered/Not Resolved]
  - White blood cell count decreased [Not Recovered/Not Resolved]
  - Malaise [Unknown]
  - Visual impairment [Unknown]
  - Vision blurred [Unknown]
  - Conversion disorder [Unknown]
  - Red blood cell abnormality [Unknown]
  - White blood cell count abnormal [Unknown]
  - Leukopenia [Unknown]
  - White blood cell count decreased [Not Recovered/Not Resolved]
  - Memory impairment [Unknown]
  - White blood cell count decreased [Not Recovered/Not Resolved]
  - Leukopenia [Not Recovered/Not Resolved]
  - Disorientation [Unknown]
  - White blood cell count decreased [Not Recovered/Not Resolved]
  - Vision blurred [Not Recovered/Not Resolved]
  - Dysphagia [Unknown]
  - Vision blurred [Unknown]
  - Dyspnoea [Unknown]
  - Influenza like illness [Not Recovered/Not Resolved]
  - Mass [Unknown]
  - Pruritus [Unknown]
  - Erythema [Unknown]
  - Cough [Recovering/Resolving]
  - Nasopharyngitis [Recovering/Resolving]
  - Irritable bowel syndrome [Unknown]
  - Onychoclasis [Unknown]
  - Tremor [Unknown]
  - Tremor [Not Recovered/Not Resolved]
  - Tremor [Unknown]
  - Tremor [Not Recovered/Not Resolved]
  - Tremor [Unknown]
  - Alopecia [Not Recovered/Not Resolved]
  - Dry mouth [Unknown]
  - Insomnia [Not Recovered/Not Resolved]
  - Dry skin [Unknown]
  - Insomnia [Not Recovered/Not Resolved]
  - Asthenia [Unknown]
  - Fatigue [Unknown]
  - Platelet count decreased [Not Recovered/Not Resolved]
  - Red blood cell count decreased [Not Recovered/Not Resolved]
  - Dry mouth [Unknown]
  - Dizziness [Unknown]
  - Asthenia [Unknown]
  - Chills [Recovering/Resolving]
  - Asthenia [Unknown]
